FAERS Safety Report 5727982-X (Version None)
Quarter: 2008Q2

REPORT INFORMATION
  Report Type: 
  Country: None (occurrence: None)
  Receive Date: 20080505
  Receipt Date: 20080410
  Transmission Date: 20081010
  Serious: No
  Sender: FDA-Public Use
  Company Number: US-BOEHRINGER INGELHEIM GMBH, GERMANY-2008-BP-03075BP

PATIENT
  Sex: Female
  Weight: 55 kg

DRUGS (3)
  1. CATAPRES-TTS-1 [Suspect]
     Indication: HYPERTENSION
     Route: 061
     Dates: start: 20070725
  2. DILTIAZEM [Concomitant]
     Dates: start: 20071114
  3. LISINOPRIL [Concomitant]
     Dates: start: 20071119

REACTIONS (5)
  - APPLICATION SITE IRRITATION [None]
  - APPLICATION SITE RASH [None]
  - RASH ERYTHEMATOUS [None]
  - RASH PAPULAR [None]
  - RASH PRURITIC [None]
